FAERS Safety Report 16711319 (Version 1)
Quarter: 2019Q3

REPORT INFORMATION
  Report Type: Spontaneous
  Country: DE (occurrence: DE)
  Receive Date: 20190816
  Receipt Date: 20190816
  Transmission Date: 20191004
  Serious: Yes (Hospitalization)
  Sender: FDA-Public Use
  Company Number: DE-PFIZER INC-2019346988

PATIENT
  Age: 23 Year
  Sex: Female
  Weight: 54 kg

DRUGS (1)
  1. SERTRALINE HCL [Suspect]
     Active Substance: SERTRALINE HYDROCHLORIDE
     Dosage: 50 MG, UNK (1/2-0-0)
     Route: 048
     Dates: start: 20171112

REACTIONS (8)
  - Disease recurrence [Unknown]
  - Dizziness [Unknown]
  - Cyanosis [Unknown]
  - Tremor [Unknown]
  - Blood glucose increased [Unknown]
  - Palpitations [Unknown]
  - C-reactive protein increased [Unknown]
  - Tachycardia [Unknown]

NARRATIVE: CASE EVENT DATE: 20171114
